FAERS Safety Report 5595985-4 (Version None)
Quarter: 2008Q1

REPORT INFORMATION
  Report Type: 
  Country: None (occurrence: None)
  Receive Date: 20080118
  Receipt Date: 20080110
  Transmission Date: 20080703
  Serious: Yes (Hospitalization)
  Sender: FDA-Public Use
  Company Number: HQWYE103111SEP07

PATIENT
  Sex: Male
  Weight: 65 kg

DRUGS (6)
  1. PROGRAF [Suspect]
     Indication: PROPHYLAXIS AGAINST TRANSPLANT REJECTION
     Route: 048
     Dates: start: 20070207, end: 20070912
  2. PROGRAF [Suspect]
     Dosage: ^LOW DOSE^
     Route: 048
     Dates: start: 20070918, end: 20070924
  3. RAPAMUNE [Suspect]
     Indication: PROPHYLAXIS AGAINST TRANSPLANT REJECTION
     Route: 048
     Dates: start: 20070925, end: 20070101
  4. RAPAMUNE [Suspect]
     Route: 048
     Dates: start: 20070101, end: 20070101
  5. RAPAMUNE [Suspect]
     Route: 048
     Dates: start: 20070101
  6. CELLCEPT [Suspect]
     Indication: PROPHYLAXIS AGAINST TRANSPLANT REJECTION
     Route: 048
     Dates: start: 20070207

REACTIONS (2)
  - NEPHROGENIC ANAEMIA [None]
  - RENAL FAILURE [None]
